FAERS Safety Report 4545757-4 (Version None)
Quarter: 2005Q1

REPORT INFORMATION
  Report Type: 
  Country: None (occurrence: None)
  Receive Date: 20050104
  Receipt Date: 20050104
  Transmission Date: 20050727
  Serious: No
  Sender: FDA-Public Use
  Company Number: None

PATIENT

DRUGS (2)
  1. ALBUMIN 5%, BAYER [Suspect]
  2. ALBUMIN 25% , BAYER [Suspect]

REACTIONS (1)
  - MEDICATION ERROR [None]
